FAERS Safety Report 10403737 (Version 1)
Quarter: 2014Q3

REPORT INFORMATION
  Report Type: Spontaneous
  Country: US (occurrence: US)
  Receive Date: 20140822
  Receipt Date: 20140822
  Transmission Date: 20150326
  Serious: No
  Sender: FDA-Public Use
  Company Number: US-NOVEN-14US009550

PATIENT
  Sex: Female

DRUGS (4)
  1. MINIVELLE [Suspect]
     Active Substance: ESTRADIOL
     Indication: HOT FLUSH
  2. MINIVELLE [Suspect]
     Active Substance: ESTRADIOL
     Indication: VIITH NERVE PARALYSIS
  3. MINIVELLE [Suspect]
     Active Substance: ESTRADIOL
     Indication: NIGHT SWEATS
     Dosage: 0.0375 MG, 2X/WEEK
     Route: 062
  4. MINIVELLE [Suspect]
     Active Substance: ESTRADIOL
     Indication: VULVOVAGINAL DRYNESS

REACTIONS (6)
  - Product quality issue [Recovered/Resolved]
  - Wrong technique in drug usage process [Recovered/Resolved]
  - Fungal infection [Not Recovered/Not Resolved]
  - Incorrect drug administration duration [Recovered/Resolved]
  - Drug effect decreased [Not Recovered/Not Resolved]
  - Hot flush [Recovered/Resolved]

NARRATIVE: CASE EVENT DATE: 2014
